FAERS Safety Report 6423762-0 (Version None)
Quarter: 2009Q4

REPORT INFORMATION
  Report Type: 
  Country: None (occurrence: None)
  Receive Date: 20091102
  Receipt Date: 20090919
  Transmission Date: 20100525
  Serious: Yes (Hospitalization)
  Sender: FDA-Public Use
  Company Number: BR-PFIZER INC-2009271509

PATIENT
  Age: 53 Year
  Sex: Female

DRUGS (1)
  1. CHAMPIX [Suspect]
     Indication: TOBACCO USER
     Dosage: UNK
     Route: 048
     Dates: start: 20090910, end: 20090917

REACTIONS (9)
  - ABDOMINAL PAIN UPPER [None]
  - DIARRHOEA [None]
  - DYSENTERY [None]
  - HEADACHE [None]
  - HYPOAESTHESIA ORAL [None]
  - MALAISE [None]
  - MYALGIA [None]
  - RENAL IMPAIRMENT [None]
  - VOMITING [None]
